FAERS Safety Report 7388925-9 (Version None)
Quarter: 2011Q1

REPORT INFORMATION
  Report Type: 
  Country: None (occurrence: None)
  Receive Date: 20110329
  Receipt Date: 20110329
  Transmission Date: 20110831
  Serious: No
  Sender: FDA-Public Use
  Company Number: None

PATIENT
  Sex: Female

DRUGS (1)
  1. EFFEXOR [Suspect]
     Dosage: 150MG 1 AM PO
     Route: 048
     Dates: start: 20100901, end: 20110328

REACTIONS (1)
  - IRRITABILITY [None]
